FAERS Safety Report 14040657 (Version 1)
Quarter: 2017Q4

REPORT INFORMATION
  Report Type: Spontaneous
  Country: US (occurrence: US)
  Receive Date: 20171004
  Receipt Date: 20171004
  Transmission Date: 20180321
  Serious: No
  Sender: FDA-Public Use
  Company Number: US-AMGEN-USASP2016161079

PATIENT
  Age: 65 Year
  Sex: Male
  Weight: 62 kg

DRUGS (14)
  1. MULTI DAY MULTIVITAMIN PLUS IRON [Concomitant]
     Dosage: 400 MG, UNK
     Route: 048
  2. PROLIA [Suspect]
     Active Substance: DENOSUMAB
     Dosage: UNK
     Route: 058
  3. PROLIA [Suspect]
     Active Substance: DENOSUMAB
     Dosage: UNK
     Route: 058
  4. ALBUTEROL SULFATE. [Concomitant]
     Active Substance: ALBUTEROL SULFATE
     Dosage: 90 MUG, AS NECESSARY
     Route: 045
  5. INCRUSE ELLIPTA [Concomitant]
     Active Substance: UMECLIDINIUM BROMIDE
     Dosage: 62.5 MG, UNK
     Route: 045
  6. LIPITOR [Concomitant]
     Active Substance: ATORVASTATIN CALCIUM
     Dosage: 10 MG, QD
     Route: 048
  7. CALCIO + VIT D [Concomitant]
     Dosage: 500 MG, UNK
  8. PROLIA [Suspect]
     Active Substance: DENOSUMAB
     Dosage: UNK
     Route: 058
  9. EXFORGE HCT [Concomitant]
     Active Substance: AMLODIPINE BESYLATE\HYDROCHLOROTHIAZIDE\VALSARTAN
     Dosage: 5 MG(160 MG/25 MG)(1/2 TAB), QD
  10. KRILL OIL [Concomitant]
     Active Substance: DIETARY SUPPLEMENT
     Dosage: 1500 MG, UNK
  11. TRIAMCINOLONE ACETONIDE. [Concomitant]
     Active Substance: TRIAMCINOLONE ACETONIDE
     Dosage: UNK UNK, BID
     Route: 061
  12. PROLIA [Suspect]
     Active Substance: DENOSUMAB
     Indication: OSTEOPOROSIS POSTMENOPAUSAL
     Dosage: 60 MG(PER ML), UNK
     Route: 058
     Dates: start: 20130220
  13. CHANTIX [Concomitant]
     Active Substance: VARENICLINE TARTRATE
     Dosage: 1 MG, BID
     Route: 048
  14. NAPROXEN. [Concomitant]
     Active Substance: NAPROXEN
     Dosage: 500 MG(1/2 TAB), BID

REACTIONS (15)
  - Weight increased [Unknown]
  - Decreased appetite [Unknown]
  - Blood cholesterol increased [Unknown]
  - Blood triglycerides increased [Unknown]
  - Peripheral swelling [Not Recovered/Not Resolved]
  - Blood glucose abnormal [Unknown]
  - Low density lipoprotein increased [Unknown]
  - Blood alkaline phosphatase increased [Unknown]
  - Face oedema [Unknown]
  - Bone pain [Unknown]
  - Gait disturbance [Unknown]
  - Pain in extremity [Not Recovered/Not Resolved]
  - Very low density lipoprotein increased [Unknown]
  - Generalised oedema [Unknown]
  - Swelling face [Unknown]

NARRATIVE: CASE EVENT DATE: 2016
